FAERS Safety Report 23890292 (Version 1)
Quarter: 2024Q2

REPORT INFORMATION
  Report Type: Spontaneous
  Country: US (occurrence: US)
  Receive Date: 20240523
  Receipt Date: 20240523
  Transmission Date: 20240716
  Serious: No
  Sender: FDA-Public Use
  Company Number: US-PFIZER INC-PV202400067381

PATIENT
  Sex: Male

DRUGS (4)
  1. EUCRISA [Suspect]
     Active Substance: CRISABOROLE
     Dosage: UNK
  2. PIMECROLIMUS [Suspect]
     Active Substance: PIMECROLIMUS
     Dosage: UNK
  3. ELIDEL [Suspect]
     Active Substance: PIMECROLIMUS
     Dosage: UNK
  4. TACROLIMUS [Suspect]
     Active Substance: TACROLIMUS
     Dosage: UNK

REACTIONS (1)
  - Drug ineffective [Unknown]
